FAERS Safety Report 10908584 (Version 1)
Quarter: 2015Q1

REPORT INFORMATION
  Report Type: Spontaneous
  Country: IT (occurrence: IT)
  Receive Date: 20150312
  Receipt Date: 20150312
  Transmission Date: 20150721
  Serious: Yes (Hospitalization)
  Sender: FDA-Public Use
  Company Number: IT-TEVA-545934ACC

PATIENT
  Age: 1 Year
  Sex: Male
  Weight: 9 kg

DRUGS (1)
  1. OLANZAPINE. [Suspect]
     Active Substance: OLANZAPINE
     Indication: ACCIDENTAL EXPOSURE TO PRODUCT
     Dosage: 10 MG TOTAL
     Route: 048
     Dates: start: 20141127, end: 20141127

REACTIONS (6)
  - Irritability [Recovered/Resolved]
  - Injury [Unknown]
  - Crying [Recovered/Resolved]
  - Accidental exposure to product [Recovered/Resolved]
  - Sopor [Recovered/Resolved]
  - Fall [Unknown]

NARRATIVE: CASE EVENT DATE: 20141127
